FAERS Safety Report 8176325-3 (Version None)
Quarter: 2012Q1

REPORT INFORMATION
  Report Type: 
  Country: None (occurrence: None)
  Receive Date: 20120301
  Receipt Date: 20120222
  Transmission Date: 20120608
  Serious: Yes (Death, Other)
  Sender: FDA-Public Use
  Company Number: GB-UCBSA-052156

PATIENT
  Age: 54 Year
  Sex: Male

DRUGS (8)
  1. ACETAMINOPHEN W/ CODEINE [Suspect]
  2. TEGRETOL [Suspect]
     Route: 048
  3. TEGRETOL [Suspect]
     Dosage: DOSE:400 MG
  4. ACETAMINOPHEN WITH PROPOXYPHENE HCL TAB [Concomitant]
     Indication: ANALGESIC THERAPY
     Dosage: DOSE:325 MG
  5. MELOXICAM [Concomitant]
     Indication: ARTHRALGIA
     Dosage: DOSE: 7.5 MG
     Route: 048
     Dates: start: 20030512
  6. TEGRETOL [Suspect]
     Indication: EPILEPSY
     Route: 048
     Dates: start: 20030708
  7. TEGRETOL [Suspect]
     Dosage: DOSE:200 MG
  8. TEGRETOL [Suspect]
     Dosage: DOSE:100 MG

REACTIONS (7)
  - LOSS OF CONSCIOUSNESS [None]
  - CEREBRAL HAEMORRHAGE [None]
  - INJURY [None]
  - POISONING [None]
  - DYSPNOEA [None]
  - HYPERSENSITIVITY [None]
  - MALAISE [None]
